FAERS Safety Report 7118037-0 (Version None)
Quarter: 2010Q4

REPORT INFORMATION
  Report Type: 
  Country: None (occurrence: None)
  Receive Date: 20101123
  Receipt Date: 20101115
  Transmission Date: 20110411
  Serious: Yes (Life-Threatening, Hospitalization, Other)
  Sender: FDA-Public Use
  Company Number: US-ELI_LILLY_AND_COMPANY-US201007007568

PATIENT
  Sex: Male
  Weight: 73.016 kg

DRUGS (5)
  1. BYETTA [Suspect]
     Dates: start: 20060928, end: 20070701
  2. ANDROGEL [Concomitant]
     Indication: PRIMARY HYPOGONADISM
     Dates: start: 20070615, end: 20070802
  3. SIMVASTATIN [Concomitant]
     Dates: start: 20070717, end: 20070817
  4. INSULIN [Concomitant]
     Indication: TYPE 2 DIABETES MELLITUS
  5. TYLENOL (CAPLET) [Concomitant]
     Indication: PAIN

REACTIONS (12)
  - CEREBROVASCULAR ACCIDENT [None]
  - CHOLANGITIS ACUTE [None]
  - ENDOTRACHEAL INTUBATION [None]
  - HYPOTENSION [None]
  - MENTAL DISORDER [None]
  - MONOPARESIS [None]
  - OFF LABEL USE [None]
  - PANCREATIC NEOPLASM [None]
  - PANCREATITIS ACUTE [None]
  - PANCREATITIS CHRONIC [None]
  - PYREXIA [None]
  - SEPSIS [None]
